FAERS Safety Report 16351387 (Version 1)
Quarter: 2019Q2

REPORT INFORMATION
  Report Type: Spontaneous
  Country: GB (occurrence: GB)
  Receive Date: 20190524
  Receipt Date: 20190524
  Transmission Date: 20190711
  Serious: Yes (Hospitalization)
  Sender: FDA-Public Use
  Company Number: GB-ACCORD-128948

PATIENT
  Age: 82 Year

DRUGS (19)
  1. TIOTROPIUM/TIOTROPIUM BROMIDE [Concomitant]
  2. SPIRONOLACTONE. [Suspect]
     Active Substance: SPIRONOLACTONE
     Indication: PRODUCT USED FOR UNKNOWN INDICATION
  3. LACTULOSE. [Concomitant]
     Active Substance: LACTULOSE
  4. DARIFENACIN/DARIFENACIN HYDROBROMIDE [Concomitant]
  5. PARACETAMOL [Concomitant]
     Active Substance: ACETAMINOPHEN
  6. SALBUTAMOL [Concomitant]
     Active Substance: ALBUTEROL
     Route: 055
  7. RAMIPRIL. [Suspect]
     Active Substance: RAMIPRIL
     Indication: PRODUCT USED FOR UNKNOWN INDICATION
     Dosage: MORNING
  8. SERTRALINE [Concomitant]
     Active Substance: SERTRALINE HYDROCHLORIDE
  9. BISACODYL. [Concomitant]
     Active Substance: BISACODYL
  10. DOXAZOSIN [Suspect]
     Active Substance: DOXAZOSIN\DOXAZOSIN MESYLATE
     Indication: PRODUCT USED FOR UNKNOWN INDICATION
  11. FUROSEMIDE. [Suspect]
     Active Substance: FUROSEMIDE
     Indication: PRODUCT USED FOR UNKNOWN INDICATION
     Dosage: MORNING
  12. ISOSORBIDE. [Suspect]
     Active Substance: ISOSORBIDE
     Indication: PRODUCT USED FOR UNKNOWN INDICATION
  13. CO-BENELDOPA [Concomitant]
     Active Substance: BENSERAZIDE HYDROCHLORIDE\LEVODOPA
  14. FOSTAIR [Concomitant]
     Active Substance: BECLOMETHASONE\FORMOTEROL
     Dosage: 200MICROGRAMS/DOSE / 6MICROGRAMS
     Route: 055
  15. GLYCEROL [Concomitant]
     Active Substance: GLYCERIN
  16. GLYCERYL TRINITRATE [Concomitant]
     Active Substance: NITROGLYCERIN
     Route: 060
  17. BISOPROLOL [Suspect]
     Active Substance: BISOPROLOL
     Indication: PRODUCT USED FOR UNKNOWN INDICATION
  18. DOCUSATE/DOCUSATE CALCIUM/DOCUSATE POTASSIUM/DOCUSATE SODIUM [Concomitant]
  19. WARFARIN [Concomitant]
     Active Substance: WARFARIN

REACTIONS (2)
  - Hypotension [Recovering/Resolving]
  - Acute kidney injury [Recovering/Resolving]
